FAERS Safety Report 18790262 (Version 1)
Quarter: 2021Q1

REPORT INFORMATION
  Report Type: Report from Study
  Country: None (occurrence: CH)
  Receive Date: 20210126
  Receipt Date: 20210126
  Transmission Date: 20210419
  Serious: Yes (Death, Hospitalization)
  Sender: FDA-Public Use
  Company Number: CH-ABBVIE-21K-151-3745573-00

PATIENT
  Age: 76 Year
  Sex: Female

DRUGS (6)
  1. DUODOPA [Suspect]
     Active Substance: CARBIDOPA\LEVODOPA
     Dosage: MD 7.0ML, CRD 2.6ML/H, CRN 0ML/H, ED 2.0ML?16H THERAPY
     Route: 050
     Dates: start: 20200129, end: 20200922
  2. DUODOPA [Suspect]
     Active Substance: CARBIDOPA\LEVODOPA
     Dosage: MD 5.0ML, CRD 2.4ML/H, CRN 1.6ML/H, ED 1.0ML?24H THERAPY
     Route: 050
     Dates: start: 20191028, end: 20200129
  3. DUODOPA [Suspect]
     Active Substance: CARBIDOPA\LEVODOPA
     Dosage: MD 7.0ML, CRD 2.8ML/H, CRN 0ML/H, ED 2.0ML?16H THERAPY
     Route: 050
     Dates: start: 20200922, end: 20201029
  4. DUODOPA [Suspect]
     Active Substance: CARBIDOPA\LEVODOPA
     Indication: PARKINSON^S DISEASE
     Route: 050
     Dates: start: 20191014, end: 20191028
  5. STALEVO [Concomitant]
     Active Substance: CARBIDOPA\ENTACAPONE\LEVODOPA
     Indication: PRODUCT USED FOR UNKNOWN INDICATION
  6. AZILECT [Concomitant]
     Active Substance: RASAGILINE MESYLATE
     Indication: PRODUCT USED FOR UNKNOWN INDICATION

REACTIONS (6)
  - Bedridden [Unknown]
  - Weight decreased [Unknown]
  - Generalised tonic-clonic seizure [Not Recovered/Not Resolved]
  - Fall [Unknown]
  - Death [Fatal]
  - Disorientation [Unknown]

NARRATIVE: CASE EVENT DATE: 2020
